FAERS Safety Report 11136899 (Version 2)
Quarter: 2015Q2

REPORT INFORMATION
  Report Type: Report from Study
  Country: US (occurrence: US)
  Receive Date: 20150526
  Receipt Date: 20150526
  Transmission Date: 20150821
  Serious: Yes (Hospitalization)
  Sender: FDA-Public Use
  Company Number: US-BAYER-2015-249075

PATIENT
  Age: 69 Year
  Sex: Female

DRUGS (2)
  1. MIRALAX [Suspect]
     Active Substance: POLYETHYLENE GLYCOL 3350
     Dosage: UNK
  2. BETASERON [Suspect]
     Active Substance: INTERFERON BETA-1B
     Indication: RELAPSING-REMITTING MULTIPLE SCLEROSIS
     Dosage: UNK
     Dates: start: 20150210, end: 20150430

REACTIONS (5)
  - Hypoaesthesia oral [None]
  - Speech disorder [None]
  - Diarrhoea [None]
  - Constipation [None]
  - Hypoaesthesia [None]

NARRATIVE: CASE EVENT DATE: 20150430
